FAERS Safety Report 4346897-5 (Version None)
Quarter: 2004Q1

REPORT INFORMATION
  Report Type: 
  Country: None (occurrence: None)
  Receive Date: 20040325
  Receipt Date: 20040203
  Transmission Date: 20041129
  Serious: No
  Sender: FDA-Public Use
  Company Number: USA040258368

PATIENT
  Age: 82 Year
  Sex: Female

DRUGS (6)
  1. FORTEO [Suspect]
     Indication: OSTEOPOROSIS
     Dosage: 20 UG/DAY
     Dates: start: 20040129
  2. TOPROL-XL [Concomitant]
  3. ZOMIG [Concomitant]
  4. PAXIL [Concomitant]
  5. SYNTHROID [Concomitant]
  6. MORPHINE SULFATE [Concomitant]

REACTIONS (1)
  - DYSPHONIA [None]
